FAERS Safety Report 15113955 (Version 1)
Quarter: 2018Q3

REPORT INFORMATION
  Report Type: Spontaneous
  Country: DE (occurrence: DE)
  Receive Date: 20180706
  Receipt Date: 20180706
  Transmission Date: 20181010
  Serious: Yes (Other)
  Sender: FDA-Public Use
  Company Number: DE-TEVA-2018-DE-917107

PATIENT
  Age: 70 Year
  Sex: Female

DRUGS (2)
  1. LAMOTRIGIN?RATIOPHARM 100 MG TABLETTEN ZUR HERSTELLUNG EINER SUSPENSIO [Suspect]
     Active Substance: LAMOTRIGINE
     Dosage: 200 MILLIGRAM DAILY; INTAKE ONE TABLET EACH IN THE MORNING AND IN THE EVENING
     Route: 048
     Dates: start: 201802
  2. LAMOTRIGIN?TEVA 25 MG TABLETTEN [Suspect]
     Active Substance: LAMOTRIGINE
     Indication: EPILEPSY
     Dosage: 50 MILLIGRAM DAILY; INTAKE ONE TABLET EACH IN THE MORNING AND IN THE EVENING
     Route: 048
     Dates: start: 201802

REACTIONS (1)
  - Epilepsy [Unknown]
